FAERS Safety Report 8774648 (Version 4)
Quarter: 2013Q1

REPORT INFORMATION
  Report Type: Spontaneous
  Country: US (occurrence: US)
  Receive Date: 20120907
  Receipt Date: 20130130
  Transmission Date: 20140127
  Serious: Yes (Other)
  Sender: FDA-Public Use
  Company Number: US-009507513-1208USA004086

PATIENT
  Sex: Female

DRUGS (3)
  1. PEG-INTRON [Suspect]
     Indication: HEPATITIS C
     Dosage: UNK
     Dates: start: 20120421, end: 20121222
  2. RIBAVIRIN [Suspect]
     Indication: HEPATITIS C
     Dosage: UNK
     Dates: start: 20120421, end: 20121222
  3. VICTRELIS [Suspect]
     Indication: HEPATITIS C
     Dosage: UNK
     Dates: start: 20120519, end: 20121222

REACTIONS (12)
  - Hyperthyroidism [Unknown]
  - Pruritus [Unknown]
  - Lip dry [Unknown]
  - Chapped lips [Unknown]
  - Sebaceous hyperplasia [Unknown]
  - Oral pain [Unknown]
  - Skin disorder [Unknown]
  - Pruritus [Unknown]
  - Injection site erythema [Unknown]
  - Urinary tract infection [Unknown]
  - Memory impairment [Unknown]
  - Confusional state [Unknown]
